FAERS Safety Report 20064214 (Version 1)
Quarter: 2021Q4

REPORT INFORMATION
  Report Type: Spontaneous
  Country: US (occurrence: US)
  Receive Date: 20211112
  Receipt Date: 20211112
  Transmission Date: 20220304
  Serious: Yes (Other)
  Sender: FDA-Public Use
  Company Number: US-PFIZER INC-202101529506

PATIENT
  Age: 58 Year
  Sex: Female

DRUGS (2)
  1. XELJANZ XR [Suspect]
     Active Substance: TOFACITINIB CITRATE
     Dosage: 11 MG, 1X/DAY
  2. METHOTREXATE [Suspect]
     Active Substance: METHOTREXATE
     Dosage: 8 DF, WEEKLY
     Route: 048

REACTIONS (9)
  - Neuropathy peripheral [Unknown]
  - Pain in extremity [Unknown]
  - Mass [Unknown]
  - Synovial cyst [Unknown]
  - Joint swelling [Unknown]
  - Skin discolouration [Unknown]
  - Musculoskeletal stiffness [Unknown]
  - Hypoaesthesia [Unknown]
  - Peripheral swelling [Unknown]
